FAERS Safety Report 8762030 (Version 2)
Quarter: 2012Q4

REPORT INFORMATION
  Report Type: 
  Country: PT (occurrence: PT)
  Receive Date: 20120830
  Receipt Date: 20120924
  Transmission Date: 20130627
  Serious: Yes (Other)
  Sender: FDA-Public Use
  Company Number: PT-COVIDIEN/TYCO HEALTHCARE/MALLINCKRODT-T201203252

PATIENT
  Sex: Male

DRUGS (3)
  1. EXALGO EXTENDED RELEASE [Suspect]
     Indication: PAIN MANAGEMENT
     Dosage: 4 mg, UNK
     Route: 048
     Dates: start: 201205, end: 20120816
  2. LYRICA [Concomitant]
     Indication: PRODUCT USED FOR UNKNOWN INDICATION
     Dosage: UNK
  3. CIPRALEX [Concomitant]
     Indication: PRODUCT USED FOR UNKNOWN INDICATION
     Dosage: UNK

REACTIONS (3)
  - Anaemia [Unknown]
  - Rash pustular [Not Recovered/Not Resolved]
  - Purpura [Not Recovered/Not Resolved]
